FAERS Safety Report 18874808 (Version 1)
Quarter: 2021Q1

REPORT INFORMATION
  Report Type: Report from Study
  Country: US (occurrence: US)
  Receive Date: 20210210
  Receipt Date: 20210210
  Transmission Date: 20210420
  Serious: Yes (Hospitalization, Other)
  Sender: FDA-Public Use
  Company Number: US-ASTRAZENECA-2021A032532

PATIENT
  Sex: Female

DRUGS (1)
  1. LYNPARZA [Suspect]
     Active Substance: OLAPARIB
     Indication: OVARIAN CANCER
     Route: 048
     Dates: start: 20200417

REACTIONS (6)
  - Chest pain [Unknown]
  - Spinal pain [Unknown]
  - Anxiety [Unknown]
  - Stress [Unknown]
  - Product dose omission issue [Unknown]
  - Abdominal pain [Unknown]
